FAERS Safety Report 25150634 (Version 2)
Quarter: 2025Q2

REPORT INFORMATION
  Report Type: Spontaneous
  Country: DE (occurrence: DE)
  Receive Date: 20250402
  Receipt Date: 20250624
  Transmission Date: 20250717
  Serious: Yes (Life-Threatening, Hospitalization, Disabling, Other)
  Sender: JOHNSON AND JOHNSON
  Company Number: DE-JNJFOC-20250369138

PATIENT
  Age: 60 Year
  Sex: Female
  Weight: 204 kg

DRUGS (3)
  1. TREMFYA [Suspect]
     Active Substance: GUSELKUMAB
     Indication: Psoriatic arthropathy
     Route: 058
  2. TREMFYA [Suspect]
     Active Substance: GUSELKUMAB
     Route: 058
  3. TREMFYA [Suspect]
     Active Substance: GUSELKUMAB

REACTIONS (10)
  - Subcutaneous abscess [Recovered/Resolved]
  - Sepsis [Recovered/Resolved]
  - Septic shock [Recovered/Resolved]
  - Pneumonia aspiration [Recovered/Resolved]
  - Diabetes insipidus [Recovered/Resolved]
  - Renal tubular injury [Recovered/Resolved]
  - Hemiparesis [Recovered/Resolved]
  - IIIrd nerve paralysis [Recovered/Resolved]
  - Cerebral infarction [Recovered/Resolved]
  - Off label use [Unknown]

NARRATIVE: CASE EVENT DATE: 20240301
